FAERS Safety Report 20009913 (Version 2)
Quarter: 2021Q4

REPORT INFORMATION
  Report Type: Report from Study
  Country: US (occurrence: US)
  Receive Date: 20211028
  Receipt Date: 20211122
  Transmission Date: 20220303
  Serious: Yes (Hospitalization, Other)
  Sender: FDA-Public Use
  Company Number: US-BAYER-2021A234007

PATIENT
  Age: 61 Year
  Sex: Male

DRUGS (3)
  1. STIVARGA [Suspect]
     Active Substance: REGORAFENIB
     Indication: Hepatic cancer
     Dosage: 160 MG DAILY
     Route: 048
     Dates: start: 20211009, end: 20211015
  2. STIVARGA [Suspect]
     Active Substance: REGORAFENIB
     Indication: Hepatic cancer
     Dosage: 80 MG DAILY
     Route: 048
     Dates: start: 20211016, end: 202110
  3. STIVARGA [Suspect]
     Active Substance: REGORAFENIB
     Indication: Hepatic cancer
     Dosage: 120 MG DAILY
     Route: 048
     Dates: start: 20211020, end: 20211103

REACTIONS (15)
  - Atrial flutter [None]
  - Heart rate increased [None]
  - Neuropathy peripheral [Not Recovered/Not Resolved]
  - Decreased activity [Recovered/Resolved]
  - Asthenia [Recovered/Resolved]
  - Fatigue [Not Recovered/Not Resolved]
  - Decreased appetite [Recovered/Resolved]
  - Gastrointestinal motility disorder [Recovered/Resolved]
  - Dry mouth [Recovered/Resolved]
  - Dysphonia [Recovered/Resolved]
  - Grunting [Not Recovered/Not Resolved]
  - Dry skin [Recovered/Resolved]
  - Product use complaint [Recovered/Resolved]
  - Ear pain [Not Recovered/Not Resolved]
  - Oedema peripheral [None]

NARRATIVE: CASE EVENT DATE: 20211009
